FAERS Safety Report 6429870-2 (Version None)
Quarter: 2009Q4

REPORT INFORMATION
  Report Type: 
  Country: None (occurrence: None)
  Receive Date: 20091106
  Receipt Date: 20091104
  Transmission Date: 20100525
  Serious: No
  Sender: FDA-Public Use
  Company Number: US-B.I. PHARMACEUTICALS,INC./RIDGEFIELD-2009-BP-12863VE

PATIENT
  Age: 69 Year
  Sex: Female
  Weight: 95.25 kg

DRUGS (4)
  1. DIPYRIDAMOLE [Suspect]
     Indication: CARDIAC STRESS TEST
     Route: 042
     Dates: start: 20091023
  2. ATENOLOL [Concomitant]
  3. DIOVAN [Concomitant]
  4. ANOTHER DRUG TO STOP THE CHEST PAIN [Concomitant]
     Indication: CHEST PAIN

REACTIONS (1)
  - CHEST PAIN [None]
